FAERS Safety Report 12789348 (Version 2)
Quarter: 2016Q4

REPORT INFORMATION
  Report Type: Spontaneous
  Country: CA (occurrence: CA)
  Receive Date: 20160928
  Receipt Date: 20161026
  Transmission Date: 20170207
  Serious: Yes (Other)
  Sender: FDA-Public Use
  Company Number: CA-ACCORD-044490

PATIENT
  Sex: Male

DRUGS (1)
  1. METHOTREXATE ACCORD [Suspect]
     Active Substance: METHOTREXATE
     Indication: PRODUCT USED FOR UNKNOWN INDICATION
     Dosage: 1000 MG/40 ML VIAL?USED 0.48 ML FROM A LARGE VIAL OF 40ML METHOTREXATE (NEW VIAL)
     Route: 037

REACTIONS (2)
  - Headache [Unknown]
  - Superior sagittal sinus thrombosis [Unknown]
